FAERS Safety Report 5502183-9 (Version None)
Quarter: 2007Q4

REPORT INFORMATION
  Report Type: 
  Country: None (occurrence: None)
  Receive Date: 20071019
  Receipt Date: 20070327
  Transmission Date: 20080405
  Serious: Yes (Other)
  Sender: FDA-Public Use
  Company Number: PHEH2007US01428

PATIENT
  Age: 65 Year
  Sex: Male

DRUGS (6)
  1. ZOMETA [Suspect]
     Indication: METASTASES TO BONE
     Dosage: Q28DAYS, INFUSION
     Dates: start: 20020301
  2. COUMADIN [Concomitant]
  3. ANTIHYPERTENSIVE DRUGS (NO INGREDIENTS/SUBSTANCES) [Concomitant]
  4. LUPRON [Concomitant]
  5. ZOLADEX [Concomitant]
  6. TAXOTERE [Concomitant]

REACTIONS (2)
  - BONE CANCER METASTATIC [None]
  - DISEASE PROGRESSION [None]
